FAERS Safety Report 7608745-7 (Version None)
Quarter: 2011Q3

REPORT INFORMATION
  Report Type: 
  Country: None (occurrence: None)
  Receive Date: 20110714
  Receipt Date: 20110714
  Transmission Date: 20111222
  Serious: No
  Sender: FDA-Public Use
  Company Number: None

PATIENT
  Age: 52 Year
  Sex: Female
  Weight: 68.038 kg

DRUGS (5)
  1. CYMBALTA [Interacting]
  2. SELENIUM TRACE METAL ADDITIVE [Interacting]
  3. NUTRITIONAL GREEN VEGETABLE TABLET [Interacting]
  4. LOVAZA [Suspect]
     Indication: LOW DENSITY LIPOPROTEIN INCREASED
     Dosage: TWO 1-GRAM CAPSULES
     Route: 048
     Dates: start: 20110701, end: 20110709
  5. ESTRADIOL [Interacting]
     Route: 048

REACTIONS (8)
  - DIARRHOEA [None]
  - TINNITUS [None]
  - NAUSEA [None]
  - FEELING HOT [None]
  - DIZZINESS [None]
  - VERTIGO [None]
  - CHEST DISCOMFORT [None]
  - PRESYNCOPE [None]
